FAERS Safety Report 14651947 (Version 1)
Quarter: 2018Q1

REPORT INFORMATION
  Report Type: Spontaneous
  Country: BR (occurrence: BR)
  Receive Date: 20180317
  Receipt Date: 20180317
  Transmission Date: 20180509
  Serious: Yes (Other)
  Sender: FDA-Public Use
  Company Number: BR-GUERBET-BR-20180106

PATIENT
  Age: 65 Year
  Sex: Male

DRUGS (1)
  1. OPTIRAY 350 [Suspect]
     Active Substance: IOVERSOL
     Indication: COMPUTERISED TOMOGRAM
     Route: 065
     Dates: start: 20180105, end: 20180105

REACTIONS (5)
  - Anal sphincter atony [Unknown]
  - Oxygen saturation decreased [Unknown]
  - Bladder sphincter atony [Unknown]
  - Heart rate increased [Unknown]
  - Cyanosis [Unknown]
